FAERS Safety Report 19570024 (Version 2)
Quarter: 2021Q3

REPORT INFORMATION
  Report Type: Spontaneous
  Country: GB (occurrence: GB)
  Receive Date: 20210715
  Receipt Date: 20210720
  Transmission Date: 20211014
  Serious: Yes (Other)
  Sender: FDA-Public Use
  Company Number: GB-ASCEND THERAPEUTICS US, LLC-2113886

PATIENT
  Sex: Female

DRUGS (3)
  1. OESTROGEL(OESTROGEL)(ESTRADIOL) [Suspect]
     Active Substance: ESTRADIOL
     Route: 065
  2. ESTROGEL [Suspect]
     Active Substance: ESTRADIOL
  3. ESTROGEL [Suspect]
     Active Substance: ESTRADIOL
     Indication: PRODUCT USED FOR UNKNOWN INDICATION
     Route: 065

REACTIONS (2)
  - Stent placement [Unknown]
  - Myocardial infarction [Unknown]

NARRATIVE: CASE EVENT DATE: 2021
